FAERS Safety Report 10705244 (Version 2)
Quarter: 2016Q2

REPORT INFORMATION
  Report Type: Spontaneous
  Country: NO (occurrence: NO)
  Receive Date: 20150112
  Receipt Date: 20160603
  Transmission Date: 20160815
  Serious: Yes (Life-Threatening, Hospitalization, Disabling)
  Sender: FDA-Public Use
  Company Number: NO-ELI_LILLY_AND_COMPANY-NO201501001865

PATIENT
  Age: 39 Year
  Sex: Male
  Weight: 70 kg

DRUGS (4)
  1. CISORDINOL                         /00876702/ [Suspect]
     Active Substance: ZUCLOPENTHIXOL
     Indication: SCHIZOPHRENIA
     Dosage: 180 MG, UNKNOWN
     Route: 065
     Dates: start: 20090307
  2. ZYPREXA [Suspect]
     Active Substance: OLANZAPINE
     Indication: SCHIZOPHRENIA
     Dosage: 180 MG, UNKNOWN
     Route: 065
     Dates: start: 20090307
  3. CISORDINOL                         /00876702/ [Suspect]
     Active Substance: ZUCLOPENTHIXOL
     Dosage: 40 MG, MONTHLY (1/M)
     Route: 065
     Dates: start: 20120501
  4. ZYPREXA [Suspect]
     Active Substance: OLANZAPINE
     Dosage: 40 MG, MONTHLY (1/M)
     Route: 065
     Dates: start: 20120501

REACTIONS (33)
  - Skin cancer [Not Recovered/Not Resolved]
  - Disturbance in attention [Not Recovered/Not Resolved]
  - Pain [Not Recovered/Not Resolved]
  - Brain injury [Not Recovered/Not Resolved]
  - Decreased interest [Not Recovered/Not Resolved]
  - Nightmare [Unknown]
  - Insomnia [Unknown]
  - Pneumonia [Unknown]
  - Affective disorder [Unknown]
  - Cough [Unknown]
  - Muscle spasms [Unknown]
  - Muscular weakness [Unknown]
  - Depression [Unknown]
  - Chest pain [Not Recovered/Not Resolved]
  - Tinnitus [Not Recovered/Not Resolved]
  - Respiratory disorder [Unknown]
  - Post viral fatigue syndrome [Unknown]
  - Urinary tract disorder [Unknown]
  - Fatigue [Not Recovered/Not Resolved]
  - Erectile dysfunction [Not Recovered/Not Resolved]
  - Headache [Not Recovered/Not Resolved]
  - Nausea [Not Recovered/Not Resolved]
  - Aggression [Unknown]
  - Tremor [Unknown]
  - Injury [Unknown]
  - Amnesia [Unknown]
  - Decreased appetite [Not Recovered/Not Resolved]
  - Hyperthyroidism [Unknown]
  - Anxiety [Unknown]
  - Body temperature decreased [Unknown]
  - Parkinson^s disease [Unknown]
  - Multiple sclerosis [Unknown]
  - Musculoskeletal stiffness [Unknown]

NARRATIVE: CASE EVENT DATE: 20090307
